FAERS Safety Report 7674439-5 (Version None)
Quarter: 2011Q3

REPORT INFORMATION
  Report Type: 
  Country: None (occurrence: None)
  Receive Date: 20110810
  Receipt Date: 20110728
  Transmission Date: 20111222
  Serious: No
  Sender: FDA-Public Use
  Company Number: US-B.I. PHARMACEUTICALS,INC./RIDGEFIELD-2011-BP-18736BP

PATIENT
  Sex: Male

DRUGS (6)
  1. SYNTHROID [Concomitant]
     Indication: HYPOTHYROIDISM
     Route: 048
     Dates: start: 20100101
  2. VICODIN [Concomitant]
     Indication: ARTHRALGIA
     Dosage: 10 MG
     Route: 048
     Dates: start: 20090101
  3. PRADAXA [Suspect]
     Indication: BLOOD DISORDER
     Dosage: 300 MG
     Route: 048
     Dates: start: 20110101
  4. PACERONE [Concomitant]
     Indication: PULSE ABNORMAL
     Dosage: 200 MG
     Route: 048
     Dates: start: 20090101
  5. TRAZODONE HCL [Concomitant]
     Indication: SLEEP DISORDER
     Dosage: 50 MG
     Route: 048
     Dates: start: 20090101
  6. METOPROLOL TARTRATE [Concomitant]
     Indication: PULSE ABNORMAL
     Dosage: 100 MG
     Route: 048
     Dates: start: 20090101

REACTIONS (5)
  - ARTHRALGIA [None]
  - PHARYNGEAL OEDEMA [None]
  - HEADACHE [None]
  - DYSPEPSIA [None]
  - DIZZINESS [None]
